FAERS Safety Report 25933248 (Version 1)
Quarter: 2025Q4

REPORT INFORMATION
  Report Type: Spontaneous
  Country: EU (occurrence: EU)
  Receive Date: 20251017
  Receipt Date: 20251017
  Transmission Date: 20260117
  Serious: Yes (Other)
  Sender: SANDOZ
  Company Number: None

PATIENT
  Age: 73 Year
  Sex: Male
  Weight: 85 kg

DRUGS (4)
  1. AMOXICILLIN\CLAVULANIC ACID [Suspect]
     Active Substance: AMOXICILLIN\CLAVULANIC ACID
     Indication: Cellulitis
     Dosage: 2G X 3/J
     Route: 048
     Dates: start: 20250916, end: 20250923
  2. DOLIPRANE [Suspect]
     Active Substance: ACETAMINOPHEN
     Dosage: 1000 MG, QD
     Route: 048
     Dates: start: 20250918, end: 20250921
  3. DOLIPRANE [Suspect]
     Active Substance: ACETAMINOPHEN
     Indication: Procedural pain
     Dosage: 2000 MG, QD
     Route: 048
     Dates: start: 20250914, end: 20250917
  4. DOLIPRANE [Suspect]
     Active Substance: ACETAMINOPHEN
     Dosage: 1 G X 3 ON 22/09, 1 G ON 23/09
     Route: 048
     Dates: start: 20250922, end: 20250923

REACTIONS (1)
  - Cholestatic liver injury [Recovering/Resolving]

NARRATIVE: CASE EVENT DATE: 20250922
